FAERS Safety Report 5471220-2 (Version None)
Quarter: 2007Q3

REPORT INFORMATION
  Report Type: 
  Country: None (occurrence: None)
  Receive Date: 20070928
  Receipt Date: 20070827
  Transmission Date: 20080115
  Serious: No
  Sender: FDA-Public Use
  Company Number: A0676661A

PATIENT
  Age: 74 Year
  Sex: Female

DRUGS (3)
  1. FLOVENT [Suspect]
     Indication: DRUG USE FOR UNKNOWN INDICATION
     Dosage: 2PUFF TWICE PER DAY
     Route: 055
  2. NASONEX [Concomitant]
  3. THYROID TAB [Concomitant]

REACTIONS (1)
  - ORAL FUNGAL INFECTION [None]
